FAERS Safety Report 20849680 (Version 6)
Quarter: 2023Q1

REPORT INFORMATION
  Report Type: Report from Study
  Country: US (occurrence: US)
  Receive Date: 20220519
  Receipt Date: 20230323
  Transmission Date: 20230417
  Serious: Yes (Hospitalization, Other)
  Sender: FDA-Public Use
  Company Number: US-TAKEDA-2022TUS032352

PATIENT
  Age: 76 Year
  Sex: Female
  Weight: 74.83 kg

DRUGS (29)
  1. HUMAN IMMUNOGLOBULIN G [Suspect]
     Active Substance: HUMAN IMMUNOGLOBULIN G
     Indication: Immunodeficiency common variable
     Dosage: 30 GRAM, Q4WEEKS
     Route: 042
     Dates: start: 20180111
  2. VANCOMYCIN [Suspect]
     Active Substance: VANCOMYCIN
     Indication: Product used for unknown indication
     Dosage: UNK
     Route: 065
  3. ERTAPENEM [Concomitant]
     Active Substance: ERTAPENEM
     Route: 065
  4. LISINOPRIL [Concomitant]
     Active Substance: LISINOPRIL
  5. PREDNISONE [Concomitant]
     Active Substance: PREDNISONE
     Route: 065
  6. SOTALOL [Concomitant]
     Active Substance: SOTALOL
     Route: 065
  7. SINGULAIR [Concomitant]
     Active Substance: MONTELUKAST SODIUM
  8. ACETAMINOPHEN [Concomitant]
     Active Substance: ACETAMINOPHEN
  9. DIPHENHYDRAMINE [Concomitant]
     Active Substance: DIPHENHYDRAMINE
  10. LIDOCAINE [Concomitant]
     Active Substance: LIDOCAINE
  11. EPINEPHRINE [Concomitant]
     Active Substance: EPINEPHRINE
  12. UNITHROID [Concomitant]
     Active Substance: LEVOTHYROXINE SODIUM
  13. WARFARIN SODIUM [Concomitant]
     Active Substance: WARFARIN SODIUM
  14. VITAMIN D3 [Concomitant]
     Active Substance: CHOLECALCIFEROL
  15. MINERALS\VITAMINS [Concomitant]
     Active Substance: MINERALS\VITAMINS
  16. Ester C [Concomitant]
  17. CVS COENZYME Q 10 [Concomitant]
  18. CRESTOR [Concomitant]
     Active Substance: ROSUVASTATIN CALCIUM
  19. COUMADIN [Concomitant]
     Active Substance: WARFARIN SODIUM
  20. ALLOPURINOL [Concomitant]
     Active Substance: ALLOPURINOL
  21. SODIUM CHLORIDE [Concomitant]
     Active Substance: SODIUM CHLORIDE
  22. SYNTHROID [Concomitant]
     Active Substance: LEVOTHYROXINE SODIUM
  23. COREG [Concomitant]
     Active Substance: CARVEDILOL
  24. PLAVIX [Concomitant]
     Active Substance: CLOPIDOGREL BISULFATE
  25. MUCINEX [Concomitant]
     Active Substance: GUAIFENESIN
  26. VITAMIN B COMPLEX [Concomitant]
     Active Substance: CYANOCOBALAMIN\DEXPANTHENOL\NIACINAMIDE\PYRIDOXINE HYDROCHLORIDE\RIBOFLAVIN 5^-PHOSPHATE SODIUM\THIA
  27. TOPROL XL [Concomitant]
     Active Substance: METOPROLOL SUCCINATE
     Route: 065
  28. JANTOVEN [Concomitant]
     Active Substance: WARFARIN SODIUM
  29. ASPIRIN [Concomitant]
     Active Substance: ASPIRIN

REACTIONS (14)
  - Fungaemia [Unknown]
  - Pneumonia [Unknown]
  - Blood pressure decreased [Recovering/Resolving]
  - Dehydration [Recovering/Resolving]
  - Syncope [Unknown]
  - Pyrexia [Unknown]
  - Ventricular tachycardia [Unknown]
  - Carotid artery stenosis [Unknown]
  - Sinus congestion [Unknown]
  - Respiratory tract infection [Unknown]
  - Bacterial infection [Unknown]
  - Drug hypersensitivity [Unknown]
  - Sinusitis [Unknown]
  - Back pain [Unknown]

NARRATIVE: CASE EVENT DATE: 20220405
